FAERS Safety Report 16124864 (Version 2)
Quarter: 2019Q2

REPORT INFORMATION
  Report Type: Spontaneous
  Country: US (occurrence: US)
  Receive Date: 20190327
  Receipt Date: 20190418
  Transmission Date: 20190711
  Serious: Yes (Other)
  Sender: FDA-Public Use
  Company Number: US-009507513-1903USA009349

PATIENT
  Age: 23 Year
  Sex: Female
  Weight: 88.89 kg

DRUGS (1)
  1. NEXPLANON [Suspect]
     Active Substance: ETONOGESTREL
     Indication: CONTRACEPTION
     Dosage: 1 IMPLANT
     Route: 059
     Dates: start: 201601, end: 20190415

REACTIONS (7)
  - Cervicitis [Unknown]
  - Incorrect product administration duration [Unknown]
  - Device dislocation [Recovered/Resolved]
  - Psoriasis [Unknown]
  - Fibrocystic breast disease [Unknown]
  - Ovarian cyst [Unknown]
  - Complication associated with device [Recovered/Resolved]

NARRATIVE: CASE EVENT DATE: 20180611
